FAERS Safety Report 24275478 (Version 3)
Quarter: 2024Q3

REPORT INFORMATION
  Report Type: Spontaneous
  Country: JP (occurrence: JP)
  Receive Date: 20240903
  Receipt Date: 20240925
  Transmission Date: 20241016
  Serious: Yes (Death)
  Sender: ABBVIE
  Company Number: JP-TAKEDA-2024TJP011581

PATIENT
  Age: 85 Year
  Sex: Male

DRUGS (1)
  1. LEUPLIN [Suspect]
     Active Substance: LEUPROLIDE ACETATE
     Indication: Product used for unknown indication
     Dosage: FORM STRENGTH: 11.25 MILLIGRAM, Q3MONTHS, SUSTAINED RELEASED INJECTABLE
     Route: 065

REACTIONS (2)
  - Pyrexia [Fatal]
  - Pyrexia [Unknown]
